FAERS Safety Report 12736571 (Version 1)
Quarter: 2016Q3

REPORT INFORMATION
  Report Type: Spontaneous
  Country: US (occurrence: US)
  Receive Date: 20160909
  Receipt Date: 20160909
  Transmission Date: 20161109
  Serious: Yes (Hospitalization, Congenital Anomaly)
  Sender: FDA-Public Use
  Company Number: None

PATIENT
  Age: 36 Year
  Sex: Female

DRUGS (3)
  1. ENOXAPARIN [Suspect]
     Active Substance: ENOXAPARIN
     Indication: ACTIVATED PROTEIN C RESISTANCE
     Route: 058
     Dates: start: 20160611
  2. ASPIRIN. [Concomitant]
     Active Substance: ASPIRIN
  3. PRENATAL VITAMIN [Concomitant]
     Active Substance: VITAMINS

REACTIONS (3)
  - Abortion induced [None]
  - Maternal drugs affecting foetus [None]
  - Congenital anomaly [None]

NARRATIVE: CASE EVENT DATE: 20160907
